FAERS Safety Report 7465470-3 (Version None)
Quarter: 2011Q2

REPORT INFORMATION
  Report Type: 
  Country: None (occurrence: None)
  Receive Date: 20110428
  Receipt Date: 20110422
  Transmission Date: 20111010
  Serious: Yes (Life-Threatening)
  Sender: FDA-Public Use
  Company Number: 2011S1000138

PATIENT
  Sex: Male

DRUGS (2)
  1. INOVENT (DELIVERY SYSTEM) [Suspect]
     Indication: PULMONARY ARTERIAL PRESSURE INCREASED
  2. INOMAX [Suspect]
     Indication: PULMONARY ARTERIAL PRESSURE INCREASED
     Dosage: 40 PPM, CONT; INH
     Route: 055
     Dates: start: 20110420

REACTIONS (3)
  - WRONG TECHNIQUE IN DRUG USAGE PROCESS [None]
  - CARDIO-RESPIRATORY ARREST [None]
  - SURGERY [None]
